FAERS Safety Report 8816256 (Version 2)
Quarter: 2012Q4

REPORT INFORMATION
  Report Type: Report from Study
  Country: JP (occurrence: JP)
  Receive Date: 20120930
  Receipt Date: 20121025
  Transmission Date: 20130627
  Serious: Yes (Hospitalization)
  Sender: FDA-Public Use
  Company Number: JP-009507513-1209JPN011079

PATIENT
  Age: 57 Year
  Sex: Male
  Weight: 80 kg

DRUGS (4)
  1. PEGINTRON [Suspect]
     Indication: HEPATITIS C
     Dosage: 100 ?g/kg
     Route: 058
  2. REBETOL [Suspect]
     Indication: HEPATITIS C
     Dosage: 600 mg, qd
     Route: 048
     Dates: start: 20120906
  3. TELAVIC [Suspect]
     Indication: HEPATITIS C
     Dosage: 2250 milligrams per day
     Route: 048
     Dates: start: 20120906, end: 20120910
  4. TELAVIC [Suspect]
     Dosage: 1500 UNK, UNK
     Route: 048
     Dates: start: 20120915

REACTIONS (2)
  - Hyperuricaemia [Not Recovered/Not Resolved]
  - Rash [Recovering/Resolving]
